FAERS Safety Report 5781547-2 (Version None)
Quarter: 2008Q2

REPORT INFORMATION
  Report Type: 
  Country: None (occurrence: None)
  Receive Date: 20080623
  Receipt Date: 20080619
  Transmission Date: 20081010
  Serious: Yes (Other)
  Sender: FDA-Public Use
  Company Number: PE-GILEAD-2008-0016284

PATIENT
  Sex: Male
  Weight: 52.8 kg

DRUGS (3)
  1. TRUVADA [Suspect]
     Indication: HIV INFECTION
     Route: 048
     Dates: start: 20061124
  2. EFAVIRENZ [Suspect]
     Indication: HIV INFECTION
     Route: 048
     Dates: start: 20050630, end: 20080414
  3. NEVIRAPINE [Concomitant]
     Indication: HIV INFECTION

REACTIONS (1)
  - SUICIDAL IDEATION [None]
